FAERS Safety Report 20089438 (Version 29)
Quarter: 2023Q4

REPORT INFORMATION
  Report Type: Report from Study
  Country: CN (occurrence: None)
  Receive Date: 20211119
  Receipt Date: 20231108
  Transmission Date: 20240110
  Serious: Yes (Death, Hospitalization)
  Sender: FDA-Public Use
  Company Number: CN-ROCHE-2958507

PATIENT
  Sex: Male
  Weight: 63 kg

DRUGS (40)
  1. BEVACIZUMAB [Suspect]
     Active Substance: BEVACIZUMAB
     Indication: Small cell lung cancer extensive stage
     Dosage: DATE OF MOST RECENT DOSE OF BEVACIZUMAB/PLACEBO PRIOR TO AE/SAE ONSET: 08/NOV/2021
     Route: 042
     Dates: start: 20210924
  2. ATEZOLIZUMAB [Suspect]
     Active Substance: ATEZOLIZUMAB
     Indication: Small cell lung cancer extensive stage
     Dosage: DATE OF MOST RECENT DOSE OF ATEZOLIZUMAB 1200 MG PRIOR TO AE/SAE ONSET: 08/NOV/2021
     Route: 041
     Dates: start: 20210924
  3. CARBOPLATIN [Suspect]
     Active Substance: CARBOPLATIN
     Indication: Small cell lung cancer extensive stage
     Dosage: DATE OF MOST RECENT DOSE OF CARBOPLATIN 557 MG PRIOR TO SAE/AE ONSET: 08/NOV/2021?5AUC
     Route: 042
     Dates: start: 20210924
  4. ETOPOSIDE [Suspect]
     Active Substance: ETOPOSIDE
     Indication: Small cell lung cancer extensive stage
     Dosage: DATE OF MOST RECENT DOSE OF ETOPOSIDE 169 MG PRIOR TO SAE/AE ONSET: 10/NOV/2021
     Route: 042
     Dates: start: 20210924
  5. FUROSEMIDE [Concomitant]
     Active Substance: FUROSEMIDE
     Indication: Hypertension
     Route: 042
     Dates: start: 20210926, end: 20210926
  6. DIPHENHYDRAMINE HYDROCHLORIDE [Concomitant]
     Active Substance: DIPHENHYDRAMINE HYDROCHLORIDE
     Dates: start: 20211110, end: 20211111
  7. SODIUM BICARBONATE [Concomitant]
     Active Substance: SODIUM BICARBONATE
     Route: 042
     Dates: start: 20210924, end: 20210926
  8. SODIUM BICARBONATE [Concomitant]
     Active Substance: SODIUM BICARBONATE
     Dates: end: 20211111
  9. SODIUM BICARBONATE [Concomitant]
     Active Substance: SODIUM BICARBONATE
     Dates: end: 20210929
  10. SODIUM BICARBONATE [Concomitant]
     Active Substance: SODIUM BICARBONATE
     Route: 042
     Dates: start: 20211018, end: 20211020
  11. RAMOSETRON HYDROCHLORIDE [Concomitant]
     Active Substance: RAMOSETRON HYDROCHLORIDE
     Dates: end: 20210926
  12. RAMOSETRON HYDROCHLORIDE [Concomitant]
     Active Substance: RAMOSETRON HYDROCHLORIDE
     Route: 042
     Dates: start: 20210924, end: 20211111
  13. RAMOSETRON HYDROCHLORIDE [Concomitant]
     Active Substance: RAMOSETRON HYDROCHLORIDE
     Route: 042
     Dates: start: 20211108, end: 20211110
  14. RAMOSETRON HYDROCHLORIDE [Concomitant]
     Active Substance: RAMOSETRON HYDROCHLORIDE
     Route: 042
     Dates: start: 20211018, end: 20211020
  15. AMBROXOL [Concomitant]
     Active Substance: AMBROXOL
     Indication: Productive cough
     Route: 042
     Dates: start: 20210926, end: 20210930
  16. CIMETIDINE [Concomitant]
     Active Substance: CIMETIDINE
     Route: 042
     Dates: start: 20210924, end: 20211110
  17. CIMETIDINE [Concomitant]
     Active Substance: CIMETIDINE
     Route: 042
     Dates: start: 20211108, end: 20211110
  18. CIMETIDINE [Concomitant]
     Active Substance: CIMETIDINE
     Dates: end: 20211020
  19. CIMETIDINE [Concomitant]
     Active Substance: CIMETIDINE
     Route: 042
     Dates: start: 20211018, end: 20211018
  20. CIMETIDINE [Concomitant]
     Active Substance: CIMETIDINE
     Dates: end: 20210930
  21. MANNITOL [Concomitant]
     Active Substance: MANNITOL
     Route: 042
     Dates: start: 20210924, end: 20211110
  22. MANNITOL [Concomitant]
     Active Substance: MANNITOL
     Route: 042
     Dates: start: 20211018, end: 20211020
  23. MANNITOL [Concomitant]
     Active Substance: MANNITOL
     Dates: start: 20211108, end: 20211110
  24. LIDOCAINE HYDROCHLORIDE [Concomitant]
     Active Substance: DEXTROSE MONOHYDRATE\EPINEPHRINE\EPINEPHRINE BITARTRATE\LIDOCAINE\LIDOCAINE HYDROCHLORIDE\LIDOCAINE
     Indication: Local anaesthesia
     Route: 058
     Dates: start: 20210924, end: 20211108
  25. LIDOCAINE HYDROCHLORIDE [Concomitant]
     Active Substance: DEXTROSE MONOHYDRATE\EPINEPHRINE\EPINEPHRINE BITARTRATE\LIDOCAINE\LIDOCAINE HYDROCHLORIDE\LIDOCAINE
     Dates: start: 20211018, end: 20211018
  26. DYPHYLLINE [Concomitant]
     Active Substance: DYPHYLLINE
     Route: 042
     Dates: start: 20210926, end: 20210926
  27. LACTULOSE [Concomitant]
     Active Substance: LACTULOSE
     Indication: Constipation
     Route: 048
     Dates: start: 20210928, end: 20210929
  28. GLYCERIN [Concomitant]
     Active Substance: GLYCERIN
     Dates: start: 20210926, end: 20211110
  29. GLYCERIN [Concomitant]
     Active Substance: GLYCERIN
     Dates: start: 20210929, end: 20210929
  30. GLYCERIN [Concomitant]
     Active Substance: GLYCERIN
     Dates: end: 20210926
  31. GLYCERIN [Concomitant]
     Active Substance: GLYCERIN
     Dates: start: 20211110, end: 20211110
  32. ACETYLCYSTEINE [Concomitant]
     Active Substance: ACETYLCYSTEINE
     Indication: Productive cough
     Dates: start: 20210929, end: 20210930
  33. RANITIDINE HYDROCHLORIDE [Concomitant]
     Active Substance: RANITIDINE HYDROCHLORIDE
     Indication: Gastrointestinal haemorrhage
     Route: 042
     Dates: start: 20211113, end: 20211113
  34. FOSAPREPITANT [Concomitant]
     Active Substance: FOSAPREPITANT
     Dates: end: 20210924
  35. FOSAPREPITANT [Concomitant]
     Active Substance: FOSAPREPITANT
     Route: 042
     Dates: start: 20211108, end: 20211108
  36. METFORMIN HYDROCHLORIDE [Concomitant]
     Active Substance: METFORMIN HYDROCHLORIDE
     Indication: Type 2 diabetes mellitus
     Route: 048
     Dates: start: 20210918
  37. NIFEDIPINE [Concomitant]
     Active Substance: NIFEDIPINE
     Dates: start: 20210926, end: 20210926
  38. BROMHEXINE HYDROCHLORIDE [Concomitant]
     Active Substance: BROMHEXINE HYDROCHLORIDE
     Route: 042
     Dates: start: 20211113, end: 20211113
  39. DESLANOSIDE [Concomitant]
     Active Substance: DESLANOSIDE
     Route: 065
  40. CODEINE [Concomitant]
     Active Substance: CODEINE
     Indication: Cough
     Route: 048
     Dates: start: 20210927, end: 20210927

REACTIONS (2)
  - Renal failure [Fatal]
  - Hypertension [Recovered/Resolved]

NARRATIVE: CASE EVENT DATE: 20210926
